FAERS Safety Report 15359988 (Version 2)
Quarter: 2018Q3

REPORT INFORMATION
  Report Type: Report from Study
  Country: CN (occurrence: CN)
  Receive Date: 20180907
  Receipt Date: 20180917
  Transmission Date: 20181010
  Serious: Yes (Hospitalization)
  Sender: FDA-Public Use
  Company Number: CN-ROCHE-2177756

PATIENT
  Age: 35 Year
  Sex: Female
  Weight: 58 kg

DRUGS (7)
  1. CELEBREX [Concomitant]
     Active Substance: CELECOXIB
     Indication: PAIN IN EXTREMITY
     Route: 065
     Dates: start: 20180730
  2. GLUTATHIONE REDUCED [Concomitant]
     Route: 065
     Dates: start: 20180828, end: 20180901
  3. CELEBREX [Concomitant]
     Active Substance: CELECOXIB
     Indication: PERIPHERAL SWELLING
  4. MAGNESIUM ISOGLYCYRRHIZINATE [Concomitant]
     Active Substance: MAGNESIUM ISOGLYCYRRHIZINATE
     Route: 065
     Dates: start: 20180828, end: 20180901
  5. GABAPENTIN. [Concomitant]
     Active Substance: GABAPENTIN
     Indication: PAIN IN EXTREMITY
     Route: 065
     Dates: start: 20180730
  6. TRASTUZUMAB EMTANSINE [Suspect]
     Active Substance: ADO-TRASTUZUMAB EMTANSINE
     Indication: HER-2 POSITIVE BREAST CANCER
     Dosage: MOST RECENT DOSE 208.8 MG OF TRASTUZUMAB EMTANSINE PRIOR TO SAE ONSET: 21/AUG/2018
     Route: 042
     Dates: start: 20180821
  7. GABAPENTIN. [Concomitant]
     Active Substance: GABAPENTIN
     Indication: PERIPHERAL SWELLING

REACTIONS (2)
  - Platelet count decreased [Recovered/Resolved]
  - Hyponatraemia [Recovered/Resolved]

NARRATIVE: CASE EVENT DATE: 20180827
